FAERS Safety Report 9369937 (Version 2)
Quarter: 2013Q3

REPORT INFORMATION
  Report Type: Spontaneous
  Country: US (occurrence: US)
  Receive Date: 20130626
  Receipt Date: 20130722
  Transmission Date: 20140515
  Serious: Yes (Death)
  Sender: FDA-Public Use
  Company Number: US-CELGENEUS-163-POMAL-13063139

PATIENT
  Age: 76 Year
  Sex: Male

DRUGS (2)
  1. POMALYST [Suspect]
     Indication: PLASMA CELL MYELOMA
  2. KYPROLIS [Concomitant]
     Indication: PRODUCT USED FOR UNKNOWN INDICATION
     Route: 065
     Dates: end: 20130509

REACTIONS (1)
  - Sepsis [Fatal]
